FAERS Safety Report 25644599 (Version 1)
Quarter: 2025Q3

REPORT INFORMATION
  Report Type: Spontaneous
  Country: US (occurrence: None)
  Receive Date: 20250803
  Receipt Date: 20250803
  Transmission Date: 20251020
  Serious: Yes (Disabling)
  Sender: FDA-CTU
  Company Number: None

PATIENT
  Age: 60 Year
  Sex: Female
  Weight: 76.5 kg

DRUGS (5)
  1. ZOLOFT [Suspect]
     Active Substance: SERTRALINE HYDROCHLORIDE
     Indication: Depression
  2. ESTRADIOL [Concomitant]
     Active Substance: ESTRADIOL
  3. TRAMADOL [Concomitant]
     Active Substance: TRAMADOL
  4. PHENTERMINE [Concomitant]
     Active Substance: PHENTERMINE
  5. CREATINE [Concomitant]
     Active Substance: CREATINE

REACTIONS (8)
  - Amnesia [None]
  - Derealisation [None]
  - Libido increased [None]
  - Orgasm abnormal [None]
  - Emotional disorder [None]
  - Mental disorder [None]
  - Depressed mood [None]
  - Quality of life decreased [None]

NARRATIVE: CASE EVENT DATE: 20220729
